FAERS Safety Report 7217618-3 (Version None)
Quarter: 2011Q1

REPORT INFORMATION
  Report Type: 
  Country: None (occurrence: None)
  Receive Date: 20110110
  Receipt Date: 20110103
  Transmission Date: 20110831
  Serious: Yes (Hospitalization)
  Sender: FDA-Public Use
  Company Number: LK-ROCHE-746181

PATIENT
  Sex: Female

DRUGS (10)
  1. LEVOFLOXACIN [Suspect]
     Indication: PNEUMONIA
     Route: 048
  2. SPIRONOLACTONE [Concomitant]
     Dates: start: 20080911
  3. FUROSEMIDE [Concomitant]
     Dates: start: 20100925
  4. LEVOTHYROXINE [Concomitant]
     Dates: start: 20080101
  5. APIXABAN [Suspect]
     Indication: THROMBOSIS PROPHYLAXIS
     Route: 048
     Dates: start: 20080925, end: 20100914
  6. WARFARIN SODIUM [Suspect]
     Indication: THROMBOSIS PROPHYLAXIS
     Route: 048
     Dates: start: 20080925, end: 20100914
  7. CEFTRIAXONE [Suspect]
     Indication: PNEUMONIA
     Route: 048
     Dates: start: 20080925
  8. WARFARIN SODIUM [Suspect]
     Route: 048
  9. DIGOXIN [Concomitant]
     Dates: start: 20080911
  10. LOSARTAN POTASSIUM [Concomitant]
     Dates: start: 20080717

REACTIONS (3)
  - PNEUMONIA [None]
  - RASH ERYTHEMATOUS [None]
  - CARDIAC FAILURE CONGESTIVE [None]
